FAERS Safety Report 18548610 (Version 1)
Quarter: 2020Q4

REPORT INFORMATION
  Report Type: Spontaneous
  Country: US (occurrence: US)
  Receive Date: 20201126
  Receipt Date: 20201126
  Transmission Date: 20210114
  Serious: Yes (Hospitalization, Other)
  Sender: FDA-Public Use
  Company Number: US-CIPLA LTD.-2020US08877

PATIENT

DRUGS (2)
  1. GEMCITABINE. [Suspect]
     Active Substance: GEMCITABINE
     Indication: ACINAR CELL CARCINOMA OF PANCREAS
     Dosage: 1000 MILLIGRAM/SQ. METER, 4 CYCLICAL, 28-DAY CYCLES, WEEKLY FOR 3 WEEKS WITH A 1-WEEK
     Route: 042
  2. PACLITAXEL ALBUMIN [Suspect]
     Active Substance: PACLITAXEL
     Indication: ACINAR CELL CARCINOMA OF PANCREAS
     Dosage: 125 MILLIGRAM/SQ. METER, WEEKLY FOR 3 WEEKS WITH A 1-WEEK, 28-DAY CYCLES, 4 {CYCLICAL}
     Route: 042

REACTIONS (3)
  - Pyrexia [Unknown]
  - Toxicity to various agents [Unknown]
  - Neutropenia [Unknown]
